FAERS Safety Report 9261837 (Version 1)
Quarter: 2013Q2

REPORT INFORMATION
  Report Type: Spontaneous
  Country: FR (occurrence: FR)
  Receive Date: 20130429
  Receipt Date: 20130429
  Transmission Date: 20140414
  Serious: Yes (Hospitalization, Other)
  Sender: FDA-Public Use
  Company Number: FR-UCBSA-067244

PATIENT
  Age: 52 Year
  Sex: Male

DRUGS (4)
  1. VIMPAT [Suspect]
     Indication: EPILEPSY
     Route: 048
     Dates: start: 201207, end: 20121005
  2. KEPPRA [Suspect]
     Dates: start: 201210
  3. MICROPAKINE [Suspect]
     Indication: EPILEPSY
     Route: 048
     Dates: start: 2010, end: 20120901
  4. MICROPAKINE [Suspect]
     Indication: EPILEPSY
     Dosage: 250MG IN AM+ 500MG AT NIGHT
     Route: 048
     Dates: start: 20120902, end: 20120917

REACTIONS (3)
  - Alanine aminotransferase increased [Unknown]
  - Gamma-glutamyltransferase increased [Unknown]
  - Drug-induced liver injury [Unknown]
